FAERS Safety Report 6338251-1 (Version None)
Quarter: 2009Q3

REPORT INFORMATION
  Report Type: 
  Country: None (occurrence: None)
  Receive Date: 20090902
  Receipt Date: 20090827
  Transmission Date: 20100115
  Serious: Yes (Death, Other)
  Sender: FDA-Public Use
  Company Number: PL-CELGENEUS-129-C5013-07100486

PATIENT
  Sex: Male
  Weight: 82 kg

DRUGS (9)
  1. REVLIMID [Suspect]
     Indication: MULTIPLE MYELOMA
     Route: 048
     Dates: start: 20070918, end: 20071008
  2. MELPHALAN HYDROCHLORIDE [Suspect]
     Indication: MULTIPLE MYELOMA
     Route: 048
     Dates: start: 20070918, end: 20070921
  3. PREDNISONE [Suspect]
     Indication: MULTIPLE MYELOMA
     Route: 048
     Dates: start: 20070918, end: 20070921
  4. ASPIRIN [Concomitant]
     Route: 048
     Dates: start: 20070918, end: 20071010
  5. OMEPRAZOLE [Concomitant]
     Route: 048
     Dates: start: 20070918, end: 20071010
  6. DURAGESIC-100 [Concomitant]
     Indication: BONE PAIN
     Route: 062
     Dates: start: 20070918, end: 20071010
  7. LENOGRASTIM [Concomitant]
     Indication: NEUTROPENIA
     Route: 065
     Dates: start: 20071003, end: 20071011
  8. KETONAL [Concomitant]
     Indication: BONE PAIN
     Route: 048
     Dates: start: 20071009, end: 20071010
  9. TRAMADOL HCL [Concomitant]
     Indication: BONE PAIN
     Route: 065
     Dates: end: 20070917

REACTIONS (3)
  - CARDIOGENIC SHOCK [None]
  - NEUTROPENIA [None]
  - RESPIRATORY FAILURE [None]
